FAERS Safety Report 10090693 (Version 2)
Quarter: 2014Q2

REPORT INFORMATION
  Report Type: Spontaneous
  Country: US (occurrence: US)
  Receive Date: 20140421
  Receipt Date: 20140603
  Transmission Date: 20141212
  Serious: Yes (Death, Life-Threatening, Hospitalization, Other)
  Sender: FDA-Public Use
  Company Number: US-BRISTOL-MYERS SQUIBB COMPANY-20613238

PATIENT
  Age: 75 Year
  Sex: Female
  Weight: 57 kg

DRUGS (40)
  1. HYDREA [Suspect]
     Indication: ACUTE LYMPHOCYTIC LEUKAEMIA
     Dosage: PER 8 HRS.
     Route: 048
     Dates: start: 20131202, end: 20131203
  2. PONATINIB HYDROCHLORIDE [Suspect]
     Indication: ACUTE LYMPHOCYTIC LEUKAEMIA
     Dosage: , LAST DOSE: 12DEC2013
     Route: 048
     Dates: start: 20131205
  3. VINCRISTINE [Suspect]
     Indication: ACUTE LYMPHOCYTIC LEUKAEMIA
     Dosage: 2MG IN 0.9% SODIUM CHLORIDE 50ML: 02DEC2013-02DEC2013.?1MG IN 0.9% SODIUM CHLORIDE 50ML: 09DEC2013
     Route: 042
     Dates: start: 20131202
  4. ZOVIRAX [Concomitant]
     Dosage: 12DEC2013
     Dates: start: 20131202, end: 20131213
  5. ALBUTEROL [Concomitant]
  6. ZYLOPRIM [Concomitant]
  7. CILOXAN [Concomitant]
  8. CIPRO [Concomitant]
  9. BENADRYL [Concomitant]
  10. COLACE [Concomitant]
  11. CYMBALTA [Concomitant]
  12. SUBLIMAZE [Concomitant]
  13. LASIX [Concomitant]
     Dosage: 04DEC2013.?08DEC2013.?12DEC2013.?13DEC2013.
     Dates: start: 20131204, end: 20131213
  14. HUMALOG [Concomitant]
  15. CHRONULAC [Concomitant]
  16. MAGNESIUM CITRATE [Concomitant]
  17. GLUCOPHAGE [Concomitant]
  18. THERAGRAN [Concomitant]
  19. MULTIPLE VITAMINS [Concomitant]
  20. PROTONIX [Concomitant]
     Dosage: 13DEC2013.?13DEC2013-UNK
     Dates: start: 20131203
  21. NEBUPENT [Concomitant]
     Dates: start: 20131202, end: 20131204
  22. MIRALAX [Concomitant]
     Dates: start: 20131210, end: 20131213
  23. POTASSIUM CHLORIDE [Concomitant]
     Dates: start: 20131212, end: 20131213
  24. DELTASONE [Concomitant]
     Dosage: 09DEC2013.?10DEC2013-12DEC2013.?12DEC2013
     Dates: start: 20131202, end: 20131213
  25. SODIUM BICARBONATE [Concomitant]
     Dosage: MOUTH WASH
     Dates: start: 20131202, end: 20131213
  26. HEPARIN [Concomitant]
     Dosage: UNK.?11DEC2013-UNK.?01DEC2013
     Dates: start: 20110808
  27. DUONEB [Concomitant]
     Dates: start: 20131213, end: 20131213
  28. GLUCAGEN [Concomitant]
     Dates: start: 20131213
  29. REGULAR INSULIN [Concomitant]
     Dates: start: 20131213
  30. DEXTROSE [Concomitant]
     Dosage: STR: 10% INFUSION: 13DEC2013.?50% IN WATER: 13DEC2013.?5% AND 0.45% NACI WITH KCI 20 MEQ/L
  31. VANCOCIN [Concomitant]
     Dates: start: 20131213
  32. AMIDATE [Concomitant]
     Dates: start: 20131213, end: 20131213
  33. SOLU-CORTEF [Concomitant]
     Dates: start: 20131213, end: 20131213
  34. REGLAN [Concomitant]
     Dates: start: 20131213, end: 20131213
  35. BLISTEX [Concomitant]
     Dosage: MEDICATED LIP BALM
  36. ATIVAN [Concomitant]
     Dates: start: 20131204
  37. ULTRAM [Concomitant]
     Dates: start: 20131202
  38. VERSED INJ [Concomitant]
     Dates: start: 20131213, end: 20131213
  39. SOLU-MEDROL [Concomitant]
     Route: 042
  40. SODIUM CHLORIDE [Concomitant]
     Dosage: 02DEC2013.?02DEC2013-04DEC2013.?02DEC2013-UNK.?02DEC2013.?06DEC2013-UNK.?13DEC2013
     Dates: start: 20131202, end: 20131213

REACTIONS (8)
  - Sepsis [Fatal]
  - Cardiac failure congestive [Not Recovered/Not Resolved]
  - Atrial fibrillation [Not Recovered/Not Resolved]
  - Malignant neoplasm progression [Not Recovered/Not Resolved]
  - Ileus [Not Recovered/Not Resolved]
  - Gastrointestinal haemorrhage [Recovered/Resolved]
  - Pancytopenia [Not Recovered/Not Resolved]
  - Off label use [Unknown]
